FAERS Safety Report 5226596-8 (Version None)
Quarter: 2007Q1

REPORT INFORMATION
  Report Type: 
  Country: None (occurrence: None)
  Receive Date: 20070201
  Receipt Date: 20070129
  Transmission Date: 20070707
  Serious: Yes (Disabling)
  Sender: FDA-Public Use
  Company Number: AU-BOEHRINGER INGELHEIM PHARMACEUTICALS, INC.-2007-BP-01425AU

PATIENT
  Age: 74 Year
  Sex: Male

DRUGS (1)
  1. ASASANTIN SR (CAPSULE, LONG ACTING) [Suspect]
     Indication: CEREBROVASCULAR DISORDER
     Dosage: 2 CAPSULES
     Route: 048
     Dates: start: 20060907, end: 20060914

REACTIONS (2)
  - PRURITUS [None]
  - RASH MACULO-PAPULAR [None]
